FAERS Safety Report 16927052 (Version 3)
Quarter: 2020Q2

REPORT INFORMATION
  Report Type: Report from Study
  Country: CA (occurrence: CA)
  Receive Date: 20191016
  Receipt Date: 20200415
  Transmission Date: 20200713
  Serious: Yes (Death)
  Sender: FDA-Public Use
  Company Number: CA-TOLMAR, INC.-19CA000633

PATIENT
  Age: 74 Year
  Sex: Male

DRUGS (1)
  1. ELIGARD [Suspect]
     Active Substance: LEUPROLIDE ACETATE
     Indication: PROSTATE CANCER
     Dosage: 30 MG, EVERY 4 MONTHS
     Route: 065
     Dates: start: 20180719

REACTIONS (1)
  - Prostate cancer metastatic [Fatal]

NARRATIVE: CASE EVENT DATE: 20190726
